FAERS Safety Report 13049656 (Version 2)
Quarter: 2017Q1

REPORT INFORMATION
  Report Type: Report from Study
  Country: MX (occurrence: MX)
  Receive Date: 20161221
  Receipt Date: 20170118
  Transmission Date: 20170428
  Serious: Yes (Death, Other)
  Sender: FDA-Public Use
  Company Number: PHHY2016MX175314

PATIENT
  Age: 80 Year
  Sex: Male

DRUGS (4)
  1. ULTIBRO BREEZHALER [Suspect]
     Active Substance: GLYCOPYRRONIUM\INDACATEROL
     Indication: PULMONARY FIBROSIS
     Dosage: 2 DF, UNK
     Route: 065
     Dates: start: 2015
  2. PREDNISONE. [Concomitant]
     Active Substance: PREDNISONE
     Indication: PRODUCT USED FOR UNKNOWN INDICATION
     Route: 065
  3. ALLOPURINOL. [Concomitant]
     Active Substance: ALLOPURINOL
     Indication: PRODUCT USED FOR UNKNOWN INDICATION
     Route: 065
  4. MIFLONIDE [Suspect]
     Active Substance: BUDESONIDE
     Indication: PULMONARY FIBROSIS
     Dosage: 2 DF, UNK
     Route: 065
     Dates: start: 2015

REACTIONS (7)
  - Asphyxia [Unknown]
  - Product use issue [Unknown]
  - Speech disorder [Unknown]
  - Dyspnoea exertional [Unknown]
  - Pulmonary fibrosis [Unknown]
  - Condition aggravated [Unknown]
  - Chronic obstructive pulmonary disease [Fatal]

NARRATIVE: CASE EVENT DATE: 2015
